FAERS Safety Report 15752576 (Version 8)
Quarter: 2020Q4

REPORT INFORMATION
  Report Type: Spontaneous
  Country: US (occurrence: US)
  Receive Date: 20181221
  Receipt Date: 20201027
  Transmission Date: 20210113
  Serious: No
  Sender: FDA-Public Use
  Company Number: US-PFIZER INC-2018148494

PATIENT
  Age: 12 Year
  Sex: Female
  Weight: 26.31 kg

DRUGS (2)
  1. GENOTROPIN [Suspect]
     Active Substance: SOMATROPIN
     Indication: GROWTH HORMONE DEFICIENCY
     Dosage: 1.4 MG, DAILY
     Route: 058
     Dates: start: 20180217
  2. GENOTROPIN [Suspect]
     Active Substance: SOMATROPIN
     Indication: NOONAN SYNDROME

REACTIONS (3)
  - Incorrect dose administered [Unknown]
  - Blood thyroid stimulating hormone increased [Unknown]
  - Device issue [Unknown]

NARRATIVE: CASE EVENT DATE: 201803
